FAERS Safety Report 16071587 (Version 6)
Quarter: 2021Q1

REPORT INFORMATION
  Report Type: Report from Study
  Country: US (occurrence: US)
  Receive Date: 20190314
  Receipt Date: 20210331
  Transmission Date: 20210419
  Serious: Yes (Hospitalization, Other)
  Sender: FDA-Public Use
  Company Number: US-EISAI MEDICAL RESEARCH-EC-2018-048932

PATIENT
  Age: 68 Year
  Sex: Male
  Weight: 124.6 kg

DRUGS (16)
  1. PEMBROLIZUMAB. [Suspect]
     Active Substance: PEMBROLIZUMAB
     Indication: HEPATOCELLULAR CARCINOMA
     Route: 041
     Dates: start: 20181107, end: 20181128
  2. LENVATINIB [Suspect]
     Active Substance: LENVATINIB
     Route: 048
     Dates: start: 20190402, end: 20200304
  3. CRESTOR [Concomitant]
     Active Substance: ROSUVASTATIN CALCIUM
  4. ENULOSE [Concomitant]
     Active Substance: LACTULOSE
  5. TRADJENTA [Concomitant]
     Active Substance: LINAGLIPTIN
  6. PEMBROLIZUMAB. [Suspect]
     Active Substance: PEMBROLIZUMAB
     Route: 041
     Dates: start: 20190118
  7. ASPIRIN. [Concomitant]
     Active Substance: ASPIRIN
  8. LISINOPRIL. [Concomitant]
     Active Substance: LISINOPRIL
  9. LENVATINIB [Suspect]
     Active Substance: LENVATINIB
     Route: 048
     Dates: start: 20190109, end: 20190304
  10. GLIPIZIDE. [Concomitant]
     Active Substance: GLIPIZIDE
  11. METFORMIN [Concomitant]
     Active Substance: METFORMIN HYDROCHLORIDE
  12. ZETIA [Concomitant]
     Active Substance: EZETIMIBE
  13. INSULIN LISPRO HUMAN [Concomitant]
  14. LENVATINIB [Suspect]
     Active Substance: LENVATINIB
     Indication: HEPATOCELLULAR CARCINOMA
     Route: 048
     Dates: start: 20181107, end: 20181203
  15. LENVATINIB [Suspect]
     Active Substance: LENVATINIB
     Route: 048
     Dates: start: 20200430
  16. METOPROLOL. [Concomitant]
     Active Substance: METOPROLOL

REACTIONS (2)
  - Hepatic encephalopathy [Recovered/Resolved]
  - Pulmonary embolism [Not Recovered/Not Resolved]

NARRATIVE: CASE EVENT DATE: 20181204
